FAERS Safety Report 4557307-7 (Version None)
Quarter: 2005Q1

REPORT INFORMATION
  Report Type: 
  Country: None (occurrence: None)
  Receive Date: 20050118
  Receipt Date: 20050107
  Transmission Date: 20050727
  Serious: Yes (Hospitalization)
  Sender: FDA-Public Use
  Company Number: 2005009048

PATIENT
  Age: 87 Year
  Sex: Female

DRUGS (8)
  1. AMLODIPINE [Suspect]
     Indication: HYPERTENSION
     Dosage: (5 MG), ORAL
     Route: 048
     Dates: end: 20041218
  2. LISINOPRIL [Concomitant]
  3. FUROSEMIDE [Concomitant]
  4. CELECOXIB [Concomitant]
  5. ACETYLSALICYLIC ACID SRT [Concomitant]
  6. OLMESARTAN [Concomitant]
  7. ISOSORBIDE [Concomitant]
  8. TEMAZEPAM [Concomitant]

REACTIONS (2)
  - ATRIOVENTRICULAR BLOCK COMPLETE [None]
  - BRADYCARDIA [None]
